FAERS Safety Report 9633856 (Version 2)
Quarter: 2013Q4

REPORT INFORMATION
  Report Type: Spontaneous
  Country: JP (occurrence: JP)
  Receive Date: 20131021
  Receipt Date: 20131105
  Transmission Date: 20140711
  Serious: Yes (Other)
  Sender: FDA-Public Use
  Company Number: JP-ELI_LILLY_AND_COMPANY-JP201310004991

PATIENT
  Age: 66 Year
  Sex: Female
  Weight: 55 kg

DRUGS (4)
  1. CYMBALTA [Suspect]
     Indication: DEPRESSION
     Dosage: 40 MG, QD
     Route: 048
     Dates: start: 20120919, end: 20130716
  2. LEXOTAN [Concomitant]
     Dosage: UNK
     Route: 048
     Dates: start: 20110622
  3. SEROQUEL [Concomitant]
     Dosage: UNK
     Route: 048
     Dates: start: 20110617
  4. LENDORMIN [Concomitant]
     Dosage: UNK
     Route: 048
     Dates: start: 20120919

REACTIONS (1)
  - Tubulointerstitial nephritis [Recovered/Resolved]
